FAERS Safety Report 7953851-0 (Version None)
Quarter: 2011Q4

REPORT INFORMATION
  Report Type: 
  Country: None (occurrence: None)
  Receive Date: 20111202
  Receipt Date: 20111121
  Transmission Date: 20120403
  Serious: Yes (Other)
  Sender: FDA-Public Use
  Company Number: US-ELI_LILLY_AND_COMPANY-US201110003115

PATIENT
  Sex: Female
  Weight: 87.09 kg

DRUGS (2)
  1. LASIX [Concomitant]
  2. FORTEO [Suspect]
     Indication: OSTEOPOROSIS
     Dosage: 20 UG, QD
     Route: 058
     Dates: start: 20110714

REACTIONS (6)
  - DIZZINESS [None]
  - PHOTOPSIA [None]
  - CARDIAC DISORDER [None]
  - DYSPNOEA [None]
  - CARDIAC FAILURE [None]
  - CHRONIC OBSTRUCTIVE PULMONARY DISEASE [None]
